FAERS Safety Report 23936889 (Version 2)
Quarter: 2024Q2

REPORT INFORMATION
  Report Type: Spontaneous
  Country: US (occurrence: US)
  Receive Date: 20240604
  Receipt Date: 20240614
  Transmission Date: 20240716
  Serious: No
  Sender: FDA-Public Use
  Company Number: US-BAYER-2024A076010

PATIENT
  Age: 50 Year
  Sex: Female

DRUGS (2)
  1. CLIMARA PRO [Suspect]
     Active Substance: ESTRADIOL\LEVONORGESTREL
     Indication: Menopause
     Dosage: .045/.015 MG/DAY
     Route: 062
     Dates: start: 20221003
  2. OPZELURA [Concomitant]
     Active Substance: RUXOLITINIB PHOSPHATE
     Indication: Dermatitis
     Dosage: UNK

REACTIONS (1)
  - Device adhesion issue [None]

NARRATIVE: CASE EVENT DATE: 20240514
